FAERS Safety Report 17212702 (Version 1)
Quarter: 2019Q4

REPORT INFORMATION
  Report Type: Report from Study
  Country: PK (occurrence: PK)
  Receive Date: 20191230
  Receipt Date: 20191230
  Transmission Date: 20200122
  Serious: Yes (Death)
  Sender: FDA-Public Use
  Company Number: NVSC2019PK081222

PATIENT
  Age: 44 Year
  Sex: Female
  Weight: 80 kg

DRUGS (1)
  1. TASIGNA [Suspect]
     Active Substance: NILOTINIB
     Indication: CHRONIC MYELOID LEUKAEMIA
     Dosage: 800 MG (200 MG X 2 IN MORNING AND 200 MG X 2 IN EVENING)
     Route: 048
     Dates: start: 20190514

REACTIONS (1)
  - Death [Fatal]

NARRATIVE: CASE EVENT DATE: 20190810
